FAERS Safety Report 4725120-3 (Version None)
Quarter: 2005Q3

REPORT INFORMATION
  Report Type: 
  Country: None (occurrence: None)
  Receive Date: 20050726
  Receipt Date: 20050712
  Transmission Date: 20060218
  Serious: Yes (Life-Threatening, Hospitalization)
  Sender: FDA-Public Use
  Company Number: 2005AL002713

PATIENT
  Age: 12 Year
  Sex: Female

DRUGS (1)
  1. PROPYLTHIOURACIL [Suspect]
     Indication: HYPERTHYROIDISM

REACTIONS (36)
  - ANTINEUTROPHIL CYTOPLASMIC ANTIBODY POSITIVE [None]
  - BAND NEUTROPHIL PERCENTAGE INCREASED [None]
  - BLOOD THYROID STIMULATING HORMONE ABNORMAL [None]
  - BLOOD THYROID STIMULATING HORMONE DECREASED [None]
  - CACHEXIA [None]
  - COUGH [None]
  - FATIGUE [None]
  - HAEMATOCRIT DECREASED [None]
  - HAEMOGLOBIN DECREASED [None]
  - HEART RATE INCREASED [None]
  - HENOCH-SCHONLEIN PURPURA [None]
  - HYPERDYNAMIC PRECORDIUM [None]
  - HYPERHIDROSIS [None]
  - HYPERSENSITIVITY [None]
  - HYPOXIA [None]
  - IDIOPATHIC CAPILLARITIS [None]
  - PALLOR [None]
  - PHARYNGOLARYNGEAL PAIN [None]
  - PNEUMONIA PRIMARY ATYPICAL [None]
  - PROTEIN URINE PRESENT [None]
  - PULMONARY ALVEOLAR HAEMORRHAGE [None]
  - PULMONARY ARTERIAL PRESSURE INCREASED [None]
  - PULMONARY VASCULITIS [None]
  - PYREXIA [None]
  - RED BLOOD CELL SEDIMENTATION RATE INCREASED [None]
  - RED BLOOD CELLS URINE POSITIVE [None]
  - RESPIRATORY DISTRESS [None]
  - RESPIRATORY FAILURE [None]
  - RESPIRATORY TRACT INFECTION [None]
  - RESTRICTIVE PULMONARY DISEASE [None]
  - RETICULOCYTE COUNT INCREASED [None]
  - SINUSITIS [None]
  - TACHYPNOEA [None]
  - TRI-IODOTHYRONINE ABNORMAL [None]
  - TRI-IODOTHYRONINE INCREASED [None]
  - WHITE BLOOD CELL COUNT INCREASED [None]
